FAERS Safety Report 4491823-1 (Version None)
Quarter: 2004Q4

REPORT INFORMATION
  Report Type: 
  Country: None (occurrence: None)
  Receive Date: 20041028
  Receipt Date: 20041028
  Transmission Date: 20050328
  Serious: Yes (Death)
  Sender: FDA-Public Use
  Company Number: None

PATIENT
  Sex: Female
  Weight: 81.6475 kg

DRUGS (1)
  1. LEXAPRO [Suspect]
     Indication: DEPRESSION
     Dosage: 1/2 TO 1   PER DAY   ORAL
     Route: 048
     Dates: start: 20040930, end: 20041004

REACTIONS (2)
  - COMPLETED SUICIDE [None]
  - MEDICATION ERROR [None]
